FAERS Safety Report 17501557 (Version 1)
Quarter: 2020Q1

REPORT INFORMATION
  Report Type: Spontaneous
  Country: US (occurrence: US)
  Receive Date: 20200304
  Receipt Date: 20200304
  Transmission Date: 20200409
  Serious: Yes (Other)
  Sender: FDA-Public Use
  Company Number: None

PATIENT
  Age: 85 Year
  Sex: Female

DRUGS (1)
  1. BEOVU [Suspect]
     Active Substance: BROLUCIZUMAB-DBLL
     Indication: MACULAR DEGENERATION
     Route: 031
     Dates: start: 20200129

REACTIONS (4)
  - Photophobia [None]
  - Condition aggravated [None]
  - Uveitis [None]
  - Vitreous floaters [None]

NARRATIVE: CASE EVENT DATE: 20200304
